FAERS Safety Report 22165338 (Version 1)
Quarter: 2023Q2

REPORT INFORMATION
  Report Type: Spontaneous
  Country: US (occurrence: US)
  Receive Date: 20230403
  Receipt Date: 20230403
  Transmission Date: 20230722
  Serious: No
  Sender: FDA-Public Use
  Company Number: US-GSK-US2023AMR045479

PATIENT
  Sex: Female

DRUGS (2)
  1. BENLYSTA [Suspect]
     Active Substance: BELIMUMAB
     Indication: Systemic lupus erythematosus
     Dosage: 200 MG/ML, Z EVERY 7 DAYS
     Route: 058
     Dates: end: 20230217
  2. BENLYSTA [Suspect]
     Active Substance: BELIMUMAB
     Indication: Haemolytic anaemia

REACTIONS (3)
  - Mood altered [Unknown]
  - Skin discolouration [Unknown]
  - Product use in unapproved indication [Unknown]
